FAERS Safety Report 6244965 (Version 2)
Quarter: 2020Q3

REPORT INFORMATION
  Report Type: Report from Study
  Country: FR (occurrence: FR)
  Receive Date: 20070226
  Receipt Date: 20070911
  Transmission Date: 20201104
  Serious: Yes (Hospitalization, Other)
  Sender: FDA-Public Use
  Company Number: HQWYE754211DEC06

PATIENT
  Age: 61 Year
  Sex: Male
  Weight: 80 kg

DRUGS (14)
  1. TACROLIMUS. [Suspect]
     Active Substance: TACROLIMUS
     Indication: PROPHYLAXIS AGAINST TRANSPLANT REJECTION
     Dosage: 2 MG/FREQUENCY NOT PROVIDED
     Route: 048
     Dates: start: 20060328, end: 2006
  2. DIAMOX SEQUELS [Concomitant]
     Active Substance: ACETAZOLAMIDE
     Dosage: NOT PROVIDED
     Route: 065
  3. INIPOMP [Concomitant]
     Active Substance: PANTOPRAZOLE SODIUM
     Dosage: NOT PROVIDED
     Dates: start: 20061123
  4. ASPEGIC [ACETYLSALICYLATE LYSINE] [Concomitant]
     Active Substance: ASPIRIN DL-LYSINE
     Dosage: NOT PROVIDED
     Route: 065
     Dates: end: 20061113
  5. TACROLIMUS. [Suspect]
     Active Substance: TACROLIMUS
     Route: 048
     Dates: start: 20061130, end: 20061130
  6. RIVOTRIL [Concomitant]
     Active Substance: CLONAZEPAM
     Dosage: NOT PROVIDED
     Route: 065
  7. TACROLIMUS. [Suspect]
     Active Substance: TACROLIMUS
     Route: 048
     Dates: start: 20061107, end: 20061128
  8. TACROLIMUS. [Suspect]
     Active Substance: TACROLIMUS
     Route: 048
     Dates: start: 20061201, end: 20061203
  9. PERFALGAN [Concomitant]
     Active Substance: ACETAMINOPHEN
     Dosage: NOT PROVIDED
     Route: 065
     Dates: start: 20061126, end: 20061126
  10. ACUPAN [Concomitant]
     Active Substance: NEFOPAM HYDROCHLORIDE
     Dosage: NOT PROVIDED
     Route: 065
     Dates: start: 20061127, end: 20061127
  11. TACROLIMUS. [Suspect]
     Active Substance: TACROLIMUS
     Route: 048
     Dates: start: 20061204, end: 20061206
  12. TACROLIMUS. [Suspect]
     Active Substance: TACROLIMUS
     Route: 048
     Dates: start: 20061129, end: 20061129
  13. TACROLIMUS. [Suspect]
     Active Substance: TACROLIMUS
     Route: 048
     Dates: start: 20061207
  14. SODIUM BICARBONATE. [Concomitant]
     Active Substance: SODIUM BICARBONATE
     Dosage: NOT PROVIDED
     Route: 065
     Dates: start: 20061123, end: 20061210

REACTIONS (4)
  - Condition aggravated [Recovered/Resolved]
  - Hepatitis acute [Not Recovered/Not Resolved]
  - Liver transplant rejection [Not Recovered/Not Resolved]
  - Diabetes mellitus [Recovered/Resolved]

NARRATIVE: CASE EVENT DATE: 20061107
